FAERS Safety Report 23793589 (Version 6)
Quarter: 2024Q4

REPORT INFORMATION
  Report Type: Spontaneous
  Country: AT (occurrence: AT)
  Receive Date: 20240429
  Receipt Date: 20241113
  Transmission Date: 20250114
  Serious: No
  Sender: PFIZER
  Company Number: AT-PFIZER INC-PV202400046526

PATIENT
  Sex: Male

DRUGS (3)
  1. GENOTROPIN [Suspect]
     Active Substance: SOMATROPIN
     Dosage: 0.6 MG
  2. GENOTROPIN [Suspect]
     Active Substance: SOMATROPIN
     Dosage: 0.8 MG
  3. GENOTROPIN [Suspect]
     Active Substance: SOMATROPIN
     Dosage: UNK

REACTIONS (2)
  - Device physical property issue [Unknown]
  - Incorrect dose administered by device [Unknown]
